FAERS Safety Report 15310440 (Version 1)
Quarter: 2018Q3

REPORT INFORMATION
  Report Type: Spontaneous
  Country: US (occurrence: US)
  Receive Date: 20180813
  Receipt Date: 20180813
  Transmission Date: 20181010
  Serious: Yes (Life-Threatening, Hospitalization, Disabling)
  Sender: FDA-Public Use
  Company Number: None

PATIENT
  Age: 49 Year
  Sex: Female
  Weight: 49.5 kg

DRUGS (4)
  1. LYRICA [Suspect]
     Active Substance: PREGABALIN
     Indication: FIBROMYALGIA
     Dosage: ?          QUANTITY:1 DF DOSAGE FORM;?
     Route: 048
  2. KEPPRA [Concomitant]
     Active Substance: LEVETIRACETAM
  3. GABAPENTIN. [Concomitant]
     Active Substance: GABAPENTIN
  4. METHYLPHENIDATE. [Concomitant]
     Active Substance: METHYLPHENIDATE

REACTIONS (11)
  - Weight decreased [None]
  - Dyspnoea [None]
  - Tachycardia [None]
  - Fall [None]
  - Dysphagia [None]
  - Head injury [None]
  - Craniocerebral injury [None]
  - Generalised tonic-clonic seizure [None]
  - Sarcoidosis [None]
  - Personality change [None]
  - Mood altered [None]

NARRATIVE: CASE EVENT DATE: 20080901
